FAERS Safety Report 4334719-8 (Version None)
Quarter: 2004Q2

REPORT INFORMATION
  Report Type: 
  Country: None (occurrence: None)
  Receive Date: 20040405
  Receipt Date: 20040324
  Transmission Date: 20050107
  Serious: Yes (Death)
  Sender: FDA-Public Use
  Company Number: US-JNJFOC-20040305855

PATIENT
  Age: 54 Year
  Sex: Female

DRUGS (2)
  1. REMICADE [Suspect]
     Indication: RHEUMATOID ARTHRITIS
     Dosage: INTRAVENOUS
     Route: 042
  2. STEROIDS (CORTICOSTEROID NOS) [Concomitant]

REACTIONS (19)
  - ANGIOPATHY [None]
  - ANTIPHOSPHOLIPID ANTIBODIES [None]
  - CEREBROVASCULAR ACCIDENT [None]
  - COMPLEMENT FACTOR DECREASED [None]
  - DELIRIUM [None]
  - FATIGUE [None]
  - GASTROINTESTINAL HAEMORRHAGE [None]
  - HEPATITIS [None]
  - LUNG DISORDER [None]
  - LUPUS NEPHRITIS [None]
  - MALAISE [None]
  - MENTAL DISORDER [None]
  - MYOCARDIAL INFARCTION [None]
  - PETECHIAE [None]
  - PLATELET COUNT DECREASED [None]
  - PNEUMONIA [None]
  - PROTEINURIA [None]
  - RESPIRATORY TRACT INFECTION [None]
  - RHEUMATOID ARTHRITIS [None]
